FAERS Safety Report 12839963 (Version 1)
Quarter: 2016Q4

REPORT INFORMATION
  Report Type: Spontaneous
  Country: US (occurrence: US)
  Receive Date: 20161012
  Receipt Date: 20161012
  Transmission Date: 20170207
  Serious: No
  Sender: FDA-Public Use
  Company Number: US-APOTEX-2016AP010508

PATIENT
  Age: 89 Year
  Sex: Female

DRUGS (1)
  1. MOMETASONE FUROATE NASAL SPRAY [Suspect]
     Active Substance: MOMETASONE FUROATE
     Indication: COUGH
     Dosage: 1 SPRAY IN EACH NOSTRIL , BID
     Route: 045
     Dates: start: 20160718, end: 20160810

REACTIONS (1)
  - Nasal discomfort [Not Recovered/Not Resolved]

NARRATIVE: CASE EVENT DATE: 20160810
